FAERS Safety Report 5377793-2 (Version None)
Quarter: 2007Q3

REPORT INFORMATION
  Report Type: 
  Country: None (occurrence: None)
  Receive Date: 20070703
  Receipt Date: 20070621
  Transmission Date: 20080115
  Serious: Yes (Hospitalization, Other)
  Sender: FDA-Public Use
  Company Number: US-PFIZER INC-2007052387

PATIENT
  Sex: Female
  Weight: 94.3 kg

DRUGS (6)
  1. CHANTIX [Suspect]
     Indication: EX-SMOKER
     Dosage: TEXT:EVERY DAY
  2. INSULIN [Concomitant]
  3. ACETYLSALICYLIC ACID SRT [Concomitant]
  4. ZOLOFT [Concomitant]
  5. ANTICOAGULANTS [Concomitant]
  6. FISH OIL [Concomitant]

REACTIONS (4)
  - HIGH DENSITY LIPOPROTEIN [None]
  - LOW DENSITY LIPOPROTEIN [None]
  - VASCULAR GRAFT [None]
  - WEIGHT INCREASED [None]
